FAERS Safety Report 8034578-6 (Version None)
Quarter: 2012Q1

REPORT INFORMATION
  Report Type: 
  Country: None (occurrence: None)
  Receive Date: 20120110
  Receipt Date: 20120104
  Transmission Date: 20120608
  Serious: Yes (Hospitalization)
  Sender: FDA-Public Use
  Company Number: FR-ABBOTT-12P-056-0889494-00

PATIENT
  Sex: Male

DRUGS (11)
  1. NORVIR [Suspect]
     Indication: HIV INFECTION
     Route: 048
     Dates: start: 20090427
  2. REYATAZ [Suspect]
     Indication: HIV INFECTION
     Route: 048
     Dates: start: 20090427
  3. SUSTIVA [Suspect]
     Indication: HIV INFECTION
     Route: 048
     Dates: start: 20090427
  4. ISENTRESS [Suspect]
     Indication: HIV INFECTION
     Dates: start: 20090427, end: 20111209
  5. PLAVIX [Concomitant]
     Indication: ISCHAEMIC HEART DISEASE PROPHYLAXIS
  6. SECTRAL [Concomitant]
     Indication: ISCHAEMIC HEART DISEASE PROPHYLAXIS
  7. BACTRIM [Concomitant]
     Indication: PRODUCT USED FOR UNKNOWN INDICATION
  8. ASPEGIC 325 [Concomitant]
     Indication: ISCHAEMIC HEART DISEASE PROPHYLAXIS
  9. ASPIRIN [Concomitant]
     Indication: ISCHAEMIC HEART DISEASE PROPHYLAXIS
  10. PRAVASTATIN [Concomitant]
     Indication: ISCHAEMIC HEART DISEASE PROPHYLAXIS
  11. PERINDOPRIL ERBUMINE [Concomitant]
     Indication: ISCHAEMIC HEART DISEASE PROPHYLAXIS

REACTIONS (6)
  - NEPHROTIC SYNDROME [None]
  - CELL DEATH [None]
  - EOSINOPHILIA [None]
  - CHOLESTASIS [None]
  - GLOMERULONEPHRITIS MEMBRANOUS [None]
  - TUBULOINTERSTITIAL NEPHRITIS [None]
